FAERS Safety Report 18230557 (Version 3)
Quarter: 2022Q1

REPORT INFORMATION
  Report Type: Other
  Country: ES (occurrence: ES)
  Receive Date: 20200904
  Receipt Date: 20220121
  Transmission Date: 20220423
  Serious: Yes (Death, Hospitalization, Other)
  Sender: FDA-Public Use
  Company Number: ES-ASTELLAS-2020US030349

PATIENT
  Age: 48 Year
  Sex: Female

DRUGS (11)
  1. ERLOTINIB [Suspect]
     Active Substance: ERLOTINIB
     Indication: Chronic myeloid leukaemia
     Route: 065
  2. IMATINIB [Interacting]
     Active Substance: IMATINIB
     Indication: Lung adenocarcinoma
     Route: 065
  3. IMATINIB [Interacting]
     Active Substance: IMATINIB
     Indication: Chronic myeloid leukaemia
     Route: 048
  4. IMATINIB [Interacting]
     Active Substance: IMATINIB
     Route: 065
  5. IMATINIB [Interacting]
     Active Substance: IMATINIB
     Route: 065
  6. GEFITINIB [Interacting]
     Active Substance: GEFITINIB
     Indication: Lung adenocarcinoma
     Route: 065
  7. GEFITINIB [Interacting]
     Active Substance: GEFITINIB
     Indication: Chronic myeloid leukaemia
     Dosage: UNK UNK, UNKNOWN FREQ.
     Route: 048
     Dates: start: 201610, end: 20170608
  8. BISOPROLOL [Concomitant]
     Active Substance: BISOPROLOL
     Indication: Product used for unknown indication
     Route: 065
  9. INSULIN GLARGINE [Concomitant]
     Active Substance: INSULIN GLARGINE
     Indication: Product used for unknown indication
     Route: 065
  10. BEMIPARIN [Concomitant]
     Active Substance: BEMIPARIN
     Indication: Product used for unknown indication
     Route: 065
  11. REPAGLINIDE [Concomitant]
     Active Substance: REPAGLINIDE
     Indication: Product used for unknown indication
     Route: 065

REACTIONS (7)
  - Pancreatitis acute [Fatal]
  - Neoplasm progression [Fatal]
  - Pancreatitis [Recovered/Resolved]
  - Gastrointestinal toxicity [Unknown]
  - Asthenia [Unknown]
  - Drug interaction [Unknown]
  - Off label use [Unknown]

NARRATIVE: CASE EVENT DATE: 20170608
